FAERS Safety Report 20109475 (Version 3)
Quarter: 2025Q2

REPORT INFORMATION
  Report Type: Spontaneous
  Country: JP (occurrence: JP)
  Receive Date: 20211124
  Receipt Date: 20250512
  Transmission Date: 20250717
  Serious: Yes (Death)
  Sender: OTSUKA
  Company Number: JP-OTSUKA-2021_040627

PATIENT
  Age: 92 Year
  Sex: Male

DRUGS (3)
  1. SAMSCA [Suspect]
     Active Substance: TOLVAPTAN
     Indication: Cardiac failure congestive
     Dosage: 7.5 MG/DAY
     Route: 048
     Dates: start: 20210124, end: 20210128
  2. FUROSEMIDE [Suspect]
     Active Substance: FUROSEMIDE
     Indication: Cardiac failure congestive
     Route: 048
     Dates: start: 20210123
  3. ISOSORBIDE DINITRATE [Suspect]
     Active Substance: ISOSORBIDE DINITRATE
     Indication: Cardiac failure congestive
     Route: 042
     Dates: start: 20210123

REACTIONS (1)
  - Hypernatraemia [Fatal]

NARRATIVE: CASE EVENT DATE: 20210124
